FAERS Safety Report 5280577-7 (Version None)
Quarter: 2007Q1

REPORT INFORMATION
  Report Type: 
  Country: None (occurrence: None)
  Receive Date: 20070329
  Receipt Date: 20070312
  Transmission Date: 20070707
  Serious: Yes (Other)
  Sender: FDA-Public Use
  Company Number: US-SANOFI-SYNTHELABO-A03200702301

PATIENT
  Sex: Male

DRUGS (3)
  1. AMBIEN [Suspect]
     Indication: INSOMNIA
     Dosage: 1 TABLET AS NEEDED
     Route: 048
     Dates: start: 19990101, end: 20000128
  2. VICODEN [Concomitant]
     Dosage: UNK
     Route: 065
  3. NEXIUM [Concomitant]
     Dosage: UNK
     Route: 065

REACTIONS (3)
  - AMNESIA [None]
  - IMPAIRED DRIVING ABILITY [None]
  - SLEEP WALKING [None]
